FAERS Safety Report 5008127-0 (Version None)
Quarter: 2006Q1

REPORT INFORMATION
  Report Type: 
  Country: None (occurrence: None)
  Receive Date: 20060330
  Receipt Date: 20051208
  Transmission Date: 20060701
  Serious: Yes (Other)
  Sender: FDA-Public Use
  Company Number: TPA2005A01639

PATIENT
  Sex: 0

DRUGS (2)
  1. ACTOPLUS MET [Suspect]
     Dosage: 15/850 MG, PER ORAL
     Route: 048
  2. LIPITOR [Concomitant]

REACTIONS (4)
  - CARDIAC FAILURE CONGESTIVE [None]
  - DYSPNOEA [None]
  - OEDEMA [None]
  - WEIGHT INCREASED [None]
